FAERS Safety Report 7554725-X (Version None)
Quarter: 2011Q2

REPORT INFORMATION
  Report Type: 
  Country: None (occurrence: None)
  Receive Date: 20110615
  Receipt Date: 20110615
  Transmission Date: 20111010
  Serious: No
  Sender: FDA-Public Use
  Company Number: None

PATIENT
  Age: 24 Year
  Sex: Male

DRUGS (1)
  1. ALLI (ORLISTAT) [Suspect]
     Dates: start: 20091003, end: 20091221

REACTIONS (5)
  - NECROSIS [None]
  - LIVER INJURY [None]
  - SPLENOMEGALY [None]
  - HEPATITIS ACUTE [None]
  - HEPATOTOXICITY [None]
